FAERS Safety Report 17233735 (Version 1)
Quarter: 2020Q1

REPORT INFORMATION
  Report Type: Spontaneous
  Country: FR (occurrence: FR)
  Receive Date: 20200106
  Receipt Date: 20200106
  Transmission Date: 20200409
  Serious: Yes (Hospitalization)
  Sender: FDA-Public Use
  Company Number: FR-TEVA-2019-FR-1161791

PATIENT
  Age: 84 Year
  Sex: Female
  Weight: 34 kg

DRUGS (9)
  1. FORADIL 12 MICROGRAMMES, POUDRE POUR INHALATION EN GEULE [Concomitant]
     Route: 055
  2. BUDESONIDE. [Concomitant]
     Active Substance: BUDESONIDE
     Route: 055
  3. CALCIDOSE VITAMINE D, POUDRE ORALE EN SACHET-DOSE [Concomitant]
     Active Substance: CALCIUM\CHOLECALCIFEROL
     Route: 048
  4. ATACAND 8 MG, COMPRIME SECABLE [Concomitant]
     Route: 048
  5. VENTOLINE [Concomitant]
     Active Substance: ALBUTEROL
     Route: 055
  6. BISOPROLOL (FUMARATE DE) [Suspect]
     Active Substance: BISOPROLOL FUMARATE
     Indication: ACUTE MYOCARDIAL INFARCTION
     Dosage: 5 MG
     Route: 048
     Dates: start: 20190712
  7. ATORVASTATINE [Concomitant]
     Active Substance: ATORVASTATIN
     Route: 048
  8. KARDEGIC [Concomitant]
     Active Substance: ASPIRIN DL-LYSINE
     Route: 048
  9. LEVOTHYROX 50 MICROGRAMMES, COMPRIME SEACABLE [Concomitant]
     Route: 048

REACTIONS (2)
  - Dyspnoea at rest [Recovered/Resolved]
  - Chest discomfort [Recovered/Resolved]

NARRATIVE: CASE EVENT DATE: 20190721
